FAERS Safety Report 4704012-X (Version None)
Quarter: 2005Q2

REPORT INFORMATION
  Report Type: 
  Country: None (occurrence: None)
  Receive Date: 20050628
  Receipt Date: 20050610
  Transmission Date: 20051028
  Serious: Yes (Other)
  Sender: FDA-Public Use
  Company Number: USA0506100216

PATIENT
  Age: 69 Year
  Sex: Female
  Weight: 70 kg

DRUGS (3)
  1. HUMULIN N [Suspect]
     Indication: BLOOD GLUCOSE INCREASED
     Dosage: 20 U/1 IN THE MORNING
     Dates: start: 20000101
  2. HUMULIN R [Suspect]
     Indication: BLOOD GLUCOSE INCREASED
     Dosage: 10 U/1 IN THE EVENING
     Dates: start: 20000101
  3. HIGH BLOOD PRESSURE MEDICATION [Concomitant]

REACTIONS (7)
  - BLOOD GLUCOSE INCREASED [None]
  - BODY HEIGHT DECREASED [None]
  - HEADACHE [None]
  - HYPERTENSION [None]
  - PHARMACEUTICAL PRODUCT COMPLAINT [None]
  - RHEUMATOID ARTHRITIS [None]
  - VOMITING [None]
